FAERS Safety Report 5457370-5 (Version None)
Quarter: 2007Q3

REPORT INFORMATION
  Report Type: 
  Country: None (occurrence: None)
  Receive Date: 20070918
  Receipt Date: 20070906
  Transmission Date: 20080115
  Serious: Yes (Life-Threatening, Hospitalization, Other)
  Sender: FDA-Public Use
  Company Number: GB-PFIZER INC-2007070865

PATIENT
  Sex: Female

DRUGS (5)
  1. CHAMPIX [Suspect]
     Route: 048
  2. STATINS [Concomitant]
  3. INSULIN [Concomitant]
     Indication: DIABETES MELLITUS
  4. NOVORAPID [Concomitant]
     Route: 058
  5. INSULIN DETEMIR [Concomitant]
     Route: 058

REACTIONS (1)
  - CARDIAC ARREST [None]
